FAERS Safety Report 14048292 (Version 1)
Quarter: 2017Q4

REPORT INFORMATION
  Report Type: Spontaneous
  Country: FR (occurrence: FR)
  Receive Date: 20171005
  Receipt Date: 20171005
  Transmission Date: 20180321
  Serious: Yes (Hospitalization)
  Sender: FDA-Public Use
  Company Number: PHHY2017FR144337

PATIENT
  Age: 72 Year
  Sex: Female

DRUGS (2)
  1. ENTRESTO [Suspect]
     Active Substance: SACUBITRIL\VALSARTAN
     Indication: CARDIAC FAILURE
     Dosage: 100 MG(49/51 MG), UNK
     Route: 048
     Dates: start: 20161003, end: 201612
  2. ENTRESTO [Suspect]
     Active Substance: SACUBITRIL\VALSARTAN
     Dosage: 200 MG(97/103 MG), BID
     Route: 048
     Dates: start: 201612, end: 20170216

REACTIONS (4)
  - Acute kidney injury [Recovered/Resolved]
  - Psoriasis [Recovering/Resolving]
  - Rash macular [Recovering/Resolving]
  - General physical condition abnormal [Recovered/Resolved]

NARRATIVE: CASE EVENT DATE: 2016
